FAERS Safety Report 8606348-9 (Version None)
Quarter: 2012Q3

REPORT INFORMATION
  Report Type: 
  Country: None (occurrence: None)
  Receive Date: 20120820
  Receipt Date: 20120817
  Transmission Date: 20120928
  Serious: Yes (Life-Threatening, Hospitalization)
  Sender: FDA-Public Use
  Company Number: US-JNJFOC-20120802613

PATIENT
  Sex: Male
  Weight: 113.4 kg

DRUGS (4)
  1. MULTI-VITAMINS [Concomitant]
     Route: 042
  2. XARELTO [Suspect]
     Indication: KNEE ARTHROPLASTY
     Dosage: START DATE REPORTED AS ^POD#1^
     Route: 048
     Dates: start: 20120724
  3. XARELTO [Suspect]
     Indication: THROMBOSIS PROPHYLAXIS
     Dosage: START DATE REPORTED AS ^POD#1^
     Route: 048
     Dates: start: 20120724
  4. HYDROCODONE BITARTRATE [Concomitant]
     Indication: PRODUCT USED FOR UNKNOWN INDICATION

REACTIONS (1)
  - PULMONARY EMBOLISM [None]
